FAERS Safety Report 8573789-8 (Version None)
Quarter: 2012Q3

REPORT INFORMATION
  Report Type: 
  Country: None (occurrence: None)
  Receive Date: 20120806
  Receipt Date: 20120801
  Transmission Date: 20120928
  Serious: Yes (Hospitalization)
  Sender: FDA-Public Use
  Company Number: DE-GLAXOSMITHKLINE-D0076333A

PATIENT
  Sex: Female
  Weight: 59 kg

DRUGS (2)
  1. VENLAFAXINE HYDROCHLORIDE [Suspect]
     Indication: ANXIETY
     Dosage: 37.5MG PER DAY
     Route: 048
     Dates: start: 20100101
  2. CEFUROXIME AXETIL [Suspect]
     Indication: ANTIBIOTIC THERAPY
     Dosage: 500MG TWICE PER DAY
     Route: 048
     Dates: start: 20120709, end: 20120710

REACTIONS (7)
  - DIZZINESS [None]
  - NAUSEA [None]
  - CIRCULATORY COLLAPSE [None]
  - ASTHENIA [None]
  - DRUG INTERACTION [None]
  - DIARRHOEA [None]
  - DEHYDRATION [None]
